FAERS Safety Report 12561811 (Version 1)
Quarter: 2016Q3

REPORT INFORMATION
  Report Type: Spontaneous
  Country: GB (occurrence: GB)
  Receive Date: 20160715
  Receipt Date: 20160715
  Transmission Date: 20161109
  Serious: Yes (Hospitalization)
  Sender: FDA-Public Use
  Company Number: GB-PFIZER INC-1338206

PATIENT
  Age: 79 Year
  Sex: Male
  Weight: 54 kg

DRUGS (4)
  1. SALVIAE MILTIORRHIZAE [Concomitant]
     Dosage: UNK
  2. METHOTREXATE SODIUM. [Suspect]
     Active Substance: METHOTREXATE SODIUM
     Indication: HEAD AND NECK CANCER
     Dosage: 60 MG, FREQ : 1 WEEK, INT :1
     Route: 042
     Dates: start: 20120528
  3. SCUTELLARIA LATERIFLORA [Concomitant]
     Active Substance: SCUTELLARIA LATERIFLORA
     Dosage: UNK
  4. GANODERMA LUCIDUM [Concomitant]
     Dosage: UNK

REACTIONS (4)
  - Blood magnesium increased [Not Recovered/Not Resolved]
  - Blood calcium increased [Not Recovered/Not Resolved]
  - Alanine aminotransferase increased [Not Recovered/Not Resolved]
  - Blood phosphorus increased [Not Recovered/Not Resolved]

NARRATIVE: CASE EVENT DATE: 20120626
